FAERS Safety Report 8771156 (Version 4)
Quarter: 2012Q4

REPORT INFORMATION
  Report Type: Report from Study
  Country: BR (occurrence: BR)
  Receive Date: 20120906
  Receipt Date: 20120914
  Transmission Date: 20130627
  Serious: Yes (Hospitalization)
  Sender: FDA-Public Use
  Company Number: BR-ROCHE-CID000000002140621

PATIENT
  Age: 53 Year
  Sex: Female
  Weight: 69.7 kg

DRUGS (2)
  1. ZELBORAF [Suspect]
     Indication: MALIGNANT MELANOMA
     Dosage: Date of last dose prior to SAE: 28/Aug/2012
     Route: 048
     Dates: start: 20120118, end: 20120828
  2. ZELBORAF [Suspect]
     Indication: METASTATIC MALIGNANT MELANOMA

REACTIONS (1)
  - Neurological symptom [Not Recovered/Not Resolved]
